FAERS Safety Report 9536761 (Version 2)
Quarter: 2013Q3

REPORT INFORMATION
  Report Type: Report from Study
  Country: MX (occurrence: MX)
  Receive Date: 20130919
  Receipt Date: 20130919
  Transmission Date: 20140515
  Serious: Yes (Hospitalization, Other)
  Sender: FDA-Public Use
  Company Number: MX-ROCHE-1238450

PATIENT
  Age: 63 Year
  Sex: Male
  Weight: 95 kg

DRUGS (1)
  1. XELODA [Suspect]
     Indication: METASTATIC GASTRIC CANCER
     Dosage: CYCLICAL
     Route: 048
     Dates: start: 201302, end: 201305

REACTIONS (13)
  - Thrombosis [Recovered/Resolved]
  - Blindness [Recovered/Resolved]
  - Retinal detachment [Recovered/Resolved]
  - Effusion [Recovered/Resolved]
  - Renal failure [Not Recovered/Not Resolved]
  - Depression [Unknown]
  - Blood creatinine increased [Unknown]
  - Swelling [Recovered/Resolved]
  - Haemorrhage [Recovered/Resolved]
  - Diarrhoea [Not Recovered/Not Resolved]
  - Dyspnoea [Not Recovered/Not Resolved]
  - Cough [Not Recovered/Not Resolved]
  - Metastasis [Not Recovered/Not Resolved]
